FAERS Safety Report 8586498 (Version 2)
Quarter: 2013Q2

REPORT INFORMATION
  Report Type: Spontaneous
  Country: US (occurrence: US)
  Receive Date: 20120530
  Receipt Date: 20130613
  Transmission Date: 20140414
  Serious: Yes (Congenital Anomaly)
  Sender: FDA-Public Use
  Company Number: US-GLAXOSMITHKLINE-A0979145A

PATIENT
  Age: 0 Year
  Sex: Male
  Weight: 3.4 kg

DRUGS (2)
  1. PAXIL [Suspect]
     Indication: DEPRESSION
     Route: 064
     Dates: end: 200508
  2. EXCEDRIN MIGRAINE [Concomitant]

REACTIONS (5)
  - Cleft palate [Unknown]
  - Cleft uvula [Unknown]
  - Atrial septal defect [Unknown]
  - Cleft lip [Unknown]
  - Foetal exposure during pregnancy [Unknown]
